FAERS Safety Report 9724840 (Version 3)
Quarter: 2014Q1

REPORT INFORMATION
  Report Type: Spontaneous
  Country: JP (occurrence: JP)
  Receive Date: 20131202
  Receipt Date: 20140319
  Transmission Date: 20141002
  Serious: Yes (Other)
  Sender: FDA-Public Use
  Company Number: JP-MYLANLABS-2013S1026397

PATIENT
  Age: 63 Year
  Sex: Male
  Weight: 46 kg

DRUGS (16)
  1. CARBOPLATIN [Suspect]
     Indication: NON-SMALL CELL LUNG CANCER
     Route: 041
     Dates: start: 20130411, end: 20130411
  2. CARBOPLATIN [Suspect]
     Indication: NON-SMALL CELL LUNG CANCER
     Route: 041
     Dates: start: 20130509, end: 20130509
  3. CARBOPLATIN [Suspect]
     Indication: NON-SMALL CELL LUNG CANCER
     Route: 041
     Dates: start: 20130627, end: 20130627
  4. CARBOPLATIN [Suspect]
     Indication: NON-SMALL CELL LUNG CANCER
     Route: 041
     Dates: start: 20130809, end: 20130809
  5. CARBOPLATIN [Suspect]
     Indication: NON-SMALL CELL LUNG CANCER
     Route: 041
     Dates: start: 20130919, end: 20130919
  6. ABRAXANE /01116001/ [Suspect]
     Indication: NON-SMALL CELL LUNG CANCER
     Dosage: 150MG/BODY
     Route: 041
     Dates: start: 20130809, end: 20131003
  7. AVASTIN /01555201/ [Suspect]
     Indication: NON-SMALL CELL LUNG CANCER
     Dates: start: 20130411, end: 20130411
  8. AVASTIN /01555201/ [Suspect]
     Indication: NON-SMALL CELL LUNG CANCER
     Dates: start: 20130509, end: 20130509
  9. AVASTIN /01555201/ [Suspect]
     Indication: NON-SMALL CELL LUNG CANCER
     Dates: start: 20130627, end: 20130627
  10. ALIMTA [Concomitant]
     Indication: NON-SMALL CELL LUNG CANCER
     Dosage: 780MG/BODY, TOTAL DOSE OF 2340MG/BODY
     Route: 041
     Dates: start: 20130411, end: 20130411
  11. ALIMTA [Concomitant]
     Indication: NON-SMALL CELL LUNG CANCER
     Dosage: 780MG/BODY, TOTAL DOSE OF 2340MG/BODY
     Route: 041
     Dates: start: 20130509, end: 20130509
  12. ALIMTA [Concomitant]
     Indication: NON-SMALL CELL LUNG CANCER
     Dosage: 780MG/BODY, TOTAL DOSE OF 2340MG/BODY
     Route: 041
     Dates: start: 20130627, end: 20130627
  13. ALOXI [Concomitant]
     Indication: PROPHYLAXIS OF NAUSEA AND VOMITING
     Dosage: 0.75MG/BODY, TOTAL DOSE OF 1.5MG/BODY
     Route: 041
     Dates: start: 20130809, end: 20130809
  14. ALOXI [Concomitant]
     Indication: PROPHYLAXIS OF NAUSEA AND VOMITING
     Dosage: 0.75MG/BODY, TOTAL DOSE OF 1.5MG/BODY
     Route: 041
     Dates: start: 20130919, end: 20130919
  15. DEXART [Concomitant]
     Indication: PROPHYLAXIS OF NAUSEA AND VOMITING
     Dosage: 9.9MG/BODY, TOTAL DOSE OF 19.8MG/BODY
     Route: 041
     Dates: start: 20130809, end: 20130809
  16. DEXART [Concomitant]
     Indication: PROPHYLAXIS OF NAUSEA AND VOMITING
     Dosage: 9.9MG/BODY, TOTAL DOSE OF 19.8MG/BODY
     Route: 042
     Dates: start: 20130919, end: 20130919

REACTIONS (2)
  - Pneumonitis [Not Recovered/Not Resolved]
  - Lung disorder [Unknown]
